FAERS Safety Report 10351667 (Version 1)
Quarter: 2014Q3

REPORT INFORMATION
  Report Type: Spontaneous
  Country: FI (occurrence: FI)
  Receive Date: 20140730
  Receipt Date: 20140730
  Transmission Date: 20150326
  Serious: Yes (Hospitalization)
  Sender: FDA-Public Use
  Company Number: PHHY2014FI091664

PATIENT
  Age: 38 Year
  Sex: Male

DRUGS (4)
  1. RIAMET [Suspect]
     Active Substance: ARTEMETHER\LUMEFANTRINE
     Indication: MALARIA
     Dosage: 160 MG, PER DAY
     Route: 048
     Dates: start: 20140620, end: 20140622
  2. ARTESUNATE [Suspect]
     Active Substance: ARTESUNATE
     Indication: MALARIA
     Dosage: 450 MG PER DAY
     Route: 042
     Dates: start: 20140618
  3. CEFTRIAXONA FRESENIUS KABI [Concomitant]
     Indication: URINARY TRACT INFECTION
     Dosage: 2 G, PER DAY
     Route: 042
     Dates: start: 20140617, end: 20140623
  4. ARTESUNATE [Suspect]
     Active Substance: ARTESUNATE
     Dosage: 225 MG, PER DAY
     Route: 042
     Dates: start: 20140619, end: 20140619

REACTIONS (6)
  - Haemolytic anaemia [Not Recovered/Not Resolved]
  - Blood lactate dehydrogenase increased [Recovering/Resolving]
  - Blood bilirubin increased [Recovering/Resolving]
  - Fatigue [Not Recovered/Not Resolved]
  - Exercise tolerance decreased [Not Recovered/Not Resolved]
  - Haemoglobin decreased [Not Recovered/Not Resolved]

NARRATIVE: CASE EVENT DATE: 201406
